FAERS Safety Report 8132182-2 (Version None)
Quarter: 2012Q1

REPORT INFORMATION
  Report Type: 
  Country: None (occurrence: None)
  Receive Date: 20120213
  Receipt Date: 20120203
  Transmission Date: 20120608
  Serious: Yes (Hospitalization)
  Sender: FDA-Public Use
  Company Number: NO-PFIZER INC-2012027521

PATIENT
  Age: 85 Year
  Sex: Female

DRUGS (4)
  1. PANTOPRAZOLE [Suspect]
     Dosage: UNK
     Dates: end: 20120111
  2. ASPIRIN [Concomitant]
     Dosage: UNK
  3. ATENOLOL [Concomitant]
     Dosage: UNK
  4. CIPROFLOXACIN HYDROCHLORIDE [Suspect]
     Indication: URINARY TRACT INFECTION
     Dosage: UNK
     Dates: start: 20120101, end: 20120111

REACTIONS (2)
  - DELIRIUM [None]
  - HYPERAESTHESIA [None]
